FAERS Safety Report 24659152 (Version 1)
Quarter: 2024Q4

REPORT INFORMATION
  Report Type: Spontaneous
  Country: US (occurrence: None)
  Receive Date: 20241122
  Receipt Date: 20241122
  Transmission Date: 20250115
  Serious: No
  Sender: Public
  Company Number: None

PATIENT
  Age: 37 Year
  Sex: Female
  Weight: 60.75 kg

DRUGS (4)
  1. TALTZ [Suspect]
     Active Substance: IXEKIZUMAB
     Indication: Psoriasis
     Dosage: 80 MG EVERY 4 WEEKS SUBCUTANEOUS
     Route: 058
     Dates: start: 20240403
  2. EMGALITY [Concomitant]
     Active Substance: GALCANEZUMAB-GNLM
  3. MAGNESIUM [Concomitant]
     Active Substance: MAGNESIUM
  4. JENCYCLA [Concomitant]
     Active Substance: NORETHINDRONE

REACTIONS (2)
  - Injection site pruritus [None]
  - Injection site irritation [None]

NARRATIVE: CASE EVENT DATE: 20241121
